FAERS Safety Report 10032980 (Version 2)
Quarter: 2014Q1

REPORT INFORMATION
  Report Type: Spontaneous
  Country: SE (occurrence: SE)
  Receive Date: 20140324
  Receipt Date: 20140325
  Transmission Date: 20141002
  Serious: Yes (Life-Threatening, Hospitalization, Disabling, Other)
  Sender: FDA-Public Use
  Company Number: SE-B.I. PHARMACEUTICALS,INC./RIDGEFIELD-2014-BI-12380SW

PATIENT
  Age: 77 Year
  Sex: Male

DRUGS (3)
  1. PRADAXA [Suspect]
     Indication: ATRIAL FIBRILLATION
     Dosage: 300 MG
     Route: 065
     Dates: start: 2013
  2. COAPROVEL (HYDROKLORTIAZID/IRBESARTAN) [Concomitant]
     Indication: HYPERTENSION
     Route: 065
  3. ALFADIL (DOXAZOSIN) [Concomitant]
     Route: 065

REACTIONS (2)
  - Cerebral artery thrombosis [Not Recovered/Not Resolved]
  - Cerebral infarction [Unknown]
